FAERS Safety Report 9891049 (Version 1)
Quarter: 2014Q1

REPORT INFORMATION
  Report Type: Spontaneous
  Country: US (occurrence: None)
  Receive Date: 20140211
  Receipt Date: 20140211
  Transmission Date: 20141002
  Serious: No
  Sender: FDA-Public Use
  Company Number: None

PATIENT
  Age: 75 Year
  Sex: Female
  Weight: 63.96 kg

DRUGS (10)
  1. CLINDAMYCIN [Suspect]
     Indication: TOOTH ABSCESS
     Route: 048
     Dates: start: 20140107, end: 20140112
  2. VENTOLIN H.F.A [Concomitant]
  3. GLIMEPERIDE [Concomitant]
  4. CLARITIN D [Concomitant]
  5. POTASSIUM [Concomitant]
  6. ALPHA LIPOIC [Concomitant]
  7. MAGENESIUM [Concomitant]
  8. 1 A DAY ALL PURPOSE VITAMIN [Concomitant]
  9. CALCIUM [Concomitant]
  10. VITAMIN D [Concomitant]

REACTIONS (2)
  - Diarrhoea [None]
  - Abdominal discomfort [None]
